FAERS Safety Report 6987517-0 (Version None)
Quarter: 2010Q3

REPORT INFORMATION
  Report Type: 
  Country: None (occurrence: None)
  Receive Date: 20100916
  Receipt Date: 20100913
  Transmission Date: 20110219
  Serious: No
  Sender: FDA-Public Use
  Company Number: US-PFIZER INC-2010115978

PATIENT
  Sex: Male

DRUGS (7)
  1. VIAGRA [Suspect]
     Dosage: UNK
  2. VIAGRA [Suspect]
     Dosage: 100 MG, UNK
  3. SIMVASTATIN [Suspect]
     Dosage: UNK
  4. LISINOPRIL AND HYDROCHLOROTHIAZIDE [Suspect]
  5. SOTALOL [Suspect]
     Dosage: UNK
  6. WARFARIN [Suspect]
     Dosage: UNK
  7. DIGOXIN [Suspect]
     Dosage: UNK

REACTIONS (2)
  - DRUG INEFFECTIVE [None]
  - DRUG INTERACTION [None]
